FAERS Safety Report 7587803-X (Version None)
Quarter: 2011Q3

REPORT INFORMATION
  Report Type: 
  Country: None (occurrence: None)
  Receive Date: 20110705
  Receipt Date: 20110622
  Transmission Date: 20111222
  Serious: No
  Sender: FDA-Public Use
  Company Number: US-BIOGENIDEC-2011BI023039

PATIENT
  Age: 42 Year
  Sex: Female

DRUGS (5)
  1. TYSABRI [Suspect]
     Indication: MULTIPLE SCLEROSIS
     Route: 042
     Dates: start: 20101101
  2. AMBIEN [Concomitant]
  3. TYSABRI [Suspect]
     Route: 042
     Dates: start: 20070701, end: 20100401
  4. NEURONTIN [Concomitant]
  5. VICODIN [Concomitant]

REACTIONS (2)
  - ANXIETY [None]
  - TEMPERATURE INTOLERANCE [None]
